FAERS Safety Report 6029866-9 (Version None)
Quarter: 2009Q1

REPORT INFORMATION
  Report Type: 
  Country: None (occurrence: None)
  Receive Date: 20090107
  Receipt Date: 20090107
  Transmission Date: 20090719
  Serious: Yes (Other)
  Sender: FDA-Public Use
  Company Number: A0762447A

PATIENT
  Age: 37 Year
  Sex: Female

DRUGS (2)
  1. COMMIT [Suspect]
     Indication: SMOKING CESSATION THERAPY
     Route: 002
  2. COMMIT [Suspect]
     Indication: SMOKING CESSATION THERAPY
     Route: 002
     Dates: start: 20081222

REACTIONS (4)
  - DIZZINESS [None]
  - INTENTIONAL DRUG MISUSE [None]
  - LOSS OF CONSCIOUSNESS [None]
  - NICOTINE DEPENDENCE [None]
